FAERS Safety Report 9422373 (Version 1)
Quarter: 2013Q3

REPORT INFORMATION
  Report Type: Spontaneous
  Country: US (occurrence: None)
  Receive Date: 20130725
  Receipt Date: 20130725
  Transmission Date: 20140515
  Serious: Yes (Other)
  Sender: FDA-Public Use
  Company Number: None

PATIENT
  Age: 48 None
  Sex: Male

DRUGS (1)
  1. TECIFIDERA [Suspect]
     Route: 048
     Dates: start: 20130619, end: 20130630

REACTIONS (4)
  - Flushing [None]
  - Pharyngeal oedema [None]
  - Hypoaesthesia [None]
  - Chest discomfort [None]
